FAERS Safety Report 23211792 (Version 1)
Quarter: 2023Q4

REPORT INFORMATION
  Report Type: Spontaneous
  Country: US (occurrence: US)
  Receive Date: 20231121
  Receipt Date: 20231121
  Transmission Date: 20240109
  Serious: Yes (Other)
  Sender: FDA-Public Use
  Company Number: US-ENDO-CASE-0043014

PATIENT

DRUGS (7)
  1. ENDOCET [Suspect]
     Active Substance: ACETAMINOPHEN\OXYCODONE HYDROCHLORIDE
  2. PERCOCET [Suspect]
     Active Substance: ACETAMINOPHEN\OXYCODONE HYDROCHLORIDE
  3. HYDROCODONE [Suspect]
     Active Substance: HYDROCODONE
  4. OXYCODONE [Suspect]
     Active Substance: OXYCODONE
  5. TRAMADOL [Suspect]
     Active Substance: TRAMADOL\TRAMADOL HYDROCHLORIDE
  6. FENTANYL [Suspect]
     Active Substance: FENTANYL\FENTANYL CITRATE
  7. MORPHINE [Suspect]
     Active Substance: MORPHINE

REACTIONS (11)
  - Pain [Unknown]
  - Constipation [Unknown]
  - Hypertension [Unknown]
  - Cardiovascular disorder [Unknown]
  - Dental caries [Unknown]
  - Dry mouth [Unknown]
  - Osteoporosis [Unknown]
  - Endocrine disorder [Unknown]
  - Depression [Unknown]
  - Anxiety [Unknown]
  - Sleep disorder [Unknown]
